FAERS Safety Report 5304438-X (Version None)
Quarter: 2007Q2

REPORT INFORMATION
  Report Type: 
  Country: None (occurrence: None)
  Receive Date: 20070416
  Receipt Date: 20070405
  Transmission Date: 20071010
  Serious: Yes (Hospitalization)
  Sender: FDA-Public Use
  Company Number: CIP07000674

PATIENT
  Age: 85 Year
  Sex: Female

DRUGS (4)
  1. MACRODANTIN [Suspect]
     Indication: URINARY TRACT INFECTION
     Dosage: ONE ONLY, ORAL
     Route: 048
  2. WARFARIN SODIUM [Concomitant]
  3. CARDIOVASCULAR SYSTEM DRUGS [Concomitant]
  4. THYROID THERAPY [Concomitant]

REACTIONS (3)
  - ASPIRATION PLEURAL CAVITY ABNORMAL [None]
  - BLOOD TEST ABNORMAL [None]
  - PLEURISY [None]
